FAERS Safety Report 15979165 (Version 1)
Quarter: 2019Q1

REPORT INFORMATION
  Report Type: Spontaneous
  Country: US (occurrence: US)
  Receive Date: 20190215
  Receipt Date: 20190215
  Transmission Date: 20190418
  Serious: Yes (Disabling)
  Sender: FDA-Public Use
  Company Number: None

PATIENT
  Age: 55 Year
  Sex: Female
  Weight: 59.4 kg

DRUGS (1)
  1. CETIRIZINE [Suspect]
     Active Substance: CETIRIZINE HYDROCHLORIDE
     Indication: PRURITUS
     Dosage: ?          QUANTITY:1 TABLET(S);?
     Dates: end: 20190210

REACTIONS (5)
  - Nausea [None]
  - Pharyngeal oedema [None]
  - Pruritus [None]
  - Withdrawal syndrome [None]
  - Eye swelling [None]

NARRATIVE: CASE EVENT DATE: 20190210
